FAERS Safety Report 6517956-3 (Version None)
Quarter: 2009Q4

REPORT INFORMATION
  Report Type: 
  Country: None (occurrence: None)
  Receive Date: 20091224
  Receipt Date: 20091215
  Transmission Date: 20100525
  Serious: Yes (Other)
  Sender: FDA-Public Use
  Company Number: US-ELI_LILLY_AND_COMPANY-US200909006050

PATIENT
  Age: 43 Year
  Sex: Male

DRUGS (5)
  1. ZYPREXA [Suspect]
     Indication: OBSESSIVE-COMPULSIVE DISORDER
     Dosage: 5 MG, EACH EVENING
     Dates: start: 19970101
  2. ZYPREXA [Suspect]
     Dosage: 5 MG, EACH EVENING
     Dates: start: 20090101, end: 20090501
  3. ZYPREXA [Suspect]
     Dosage: 1 D/F, DAILY (1/D)
     Dates: start: 20090901
  4. TIMOPTIC [Concomitant]
     Dosage: 1 D/F, 2/D
  5. PILOCARPINE HYDROCHLORIDE [Concomitant]
     Dosage: 1 D/F, 3/D

REACTIONS (4)
  - GLAUCOMA [None]
  - INTRAOCULAR PRESSURE INCREASED [None]
  - OFF LABEL USE [None]
  - RETINAL VEIN OCCLUSION [None]
